FAERS Safety Report 14239247 (Version 1)
Quarter: 2017Q4

REPORT INFORMATION
  Report Type: Spontaneous
  Country: US (occurrence: US)
  Receive Date: 20171127
  Receipt Date: 20171127
  Transmission Date: 20180321
  Serious: Yes (Other)
  Sender: FDA-Public Use
  Company Number: None

PATIENT
  Age: 12 Year
  Sex: Male
  Weight: 43.65 kg

DRUGS (1)
  1. DIVALPROEX SPRINKLE [Suspect]
     Active Substance: DIVALPROEX SODIUM
     Indication: SEIZURE
     Route: 048

REACTIONS (3)
  - Decreased appetite [None]
  - Amylase increased [None]
  - Retching [None]

NARRATIVE: CASE EVENT DATE: 20170720
